FAERS Safety Report 7234476-1 (Version None)
Quarter: 2011Q1

REPORT INFORMATION
  Report Type: 
  Country: None (occurrence: None)
  Receive Date: 20110119
  Receipt Date: 20110113
  Transmission Date: 20110831
  Serious: Yes (Other)
  Sender: FDA-Public Use
  Company Number: US-ELI_LILLY_AND_COMPANY-US201101003621

PATIENT
  Sex: Female

DRUGS (2)
  1. BYETTA [Suspect]
  2. VICTOZA [Concomitant]

REACTIONS (2)
  - GASTROINTESTINAL STOMA COMPLICATION [None]
  - BURNS THIRD DEGREE [None]
